FAERS Safety Report 22246079 (Version 1)
Quarter: 2023Q2

REPORT INFORMATION
  Report Type: Spontaneous
  Country: JP (occurrence: JP)
  Receive Date: 20230424
  Receipt Date: 20230424
  Transmission Date: 20230721
  Serious: Yes (Hospitalization, Other)
  Sender: FDA-Public Use
  Company Number: JP-DSJP-DSJ-2023-115467

PATIENT
  Age: 61 Year
  Sex: Male
  Weight: 71.2 kg

DRUGS (18)
  1. OLMESARTAN MEDOXOMIL [Suspect]
     Active Substance: OLMESARTAN MEDOXOMIL
     Indication: Product used for unknown indication
     Dosage: 20 MG, QD
     Route: 048
  2. PRASUGREL HYDROCHLORIDE [Suspect]
     Active Substance: PRASUGREL HYDROCHLORIDE
     Indication: Vascular stent occlusion
     Dosage: 20MG/DAY
     Route: 048
  3. PRASUGREL HYDROCHLORIDE [Suspect]
     Active Substance: PRASUGREL HYDROCHLORIDE
     Indication: Vascular stent stenosis
     Dosage: 3.75MG/DAY
     Route: 048
  4. CALBLOCK [Suspect]
     Active Substance: AZELNIDIPINE
     Indication: Product used for unknown indication
     Dosage: 8 MG, QD
     Route: 048
  5. COMIRNATY [Suspect]
     Active Substance: TOZINAMERAN
     Indication: Immunisation
     Dosage: UNK
     Route: 065
  6. ASPIRIN [Concomitant]
     Active Substance: ASPIRIN
     Dosage: 100 MG, QD
     Route: 048
  7. ASPIRIN [Concomitant]
     Active Substance: ASPIRIN
     Dosage: 200MG/DAY
     Route: 048
  8. ASPIRIN [Concomitant]
     Active Substance: ASPIRIN
     Dosage: 100MG/DAY
     Route: 048
  9. BISOPROLOL FUMARATE [Concomitant]
     Active Substance: BISOPROLOL FUMARATE
     Dosage: 2.5 MG, QD
     Route: 048
  10. FEBUXOSTAT [Concomitant]
     Active Substance: FEBUXOSTAT
     Dosage: 10 MG, QD
     Route: 048
  11. PEMAFIBRATE [Concomitant]
     Active Substance: PEMAFIBRATE
     Dosage: 0.1 MG, BID
     Route: 048
  12. CANAGLIFLOZIN HEMIHYDRATE;TENELIGLIPTIN HYDROBROMIDE [Concomitant]
     Dosage: 100MG/20MG, QD
     Route: 048
  13. TICAGRELOR [Concomitant]
     Active Substance: TICAGRELOR
     Dosage: 180MG/DAY
     Route: 048
  14. TICAGRELOR [Concomitant]
     Active Substance: TICAGRELOR
     Dosage: 90MG/DAY
     Route: 048
  15. ARGATROBAN [Concomitant]
     Active Substance: ARGATROBAN
     Dosage: UNK
     Route: 041
  16. ARGATROBAN [Concomitant]
     Active Substance: ARGATROBAN
     Dosage: UNK
     Route: 065
  17. HEPARIN [Concomitant]
     Active Substance: HEPARIN SODIUM
     Dosage: 8000 IU/DAY
     Route: 065
  18. UROKINASE [Concomitant]
     Active Substance: UROKINASE
     Dosage: UNK
     Route: 041

REACTIONS (6)
  - Vascular stent occlusion [Recovering/Resolving]
  - Vascular stent stenosis [Recovering/Resolving]
  - Thrombosis with thrombocytopenia syndrome [Recovering/Resolving]
  - Device occlusion [Recovering/Resolving]
  - Electrocardiogram ST segment elevation [Recovered/Resolved]
  - Restlessness [Unknown]
